FAERS Safety Report 7200324-9 (Version None)
Quarter: 2010Q4

REPORT INFORMATION
  Report Type: 
  Country: None (occurrence: None)
  Receive Date: 20101228
  Receipt Date: 20101215
  Transmission Date: 20110411
  Serious: Yes (Other)
  Sender: FDA-Public Use
  Company Number: B0690901A

PATIENT
  Age: 71 Year
  Sex: Male

DRUGS (2)
  1. LAMIVUDINE [Suspect]
     Route: 065
     Dates: start: 20021001
  2. ADEFOVIR DIPIVOXIL KIT [Suspect]
     Route: 048
     Dates: start: 20030920

REACTIONS (2)
  - DRUG INEFFECTIVE [None]
  - PANCREATITIS ACUTE [None]
